FAERS Safety Report 10037290 (Version 1)
Quarter: 2014Q1

REPORT INFORMATION
  Report Type: Spontaneous
  Country: JP (occurrence: None)
  Receive Date: 20140324
  Receipt Date: 20140324
  Transmission Date: 20141002
  Serious: Yes (Death)
  Sender: FDA-Public Use
  Company Number: ABR_01536_2014

PATIENT
  Age: 19 Year
  Sex: Female
  Weight: 50 kg

DRUGS (2)
  1. LAMOTRIGINE (LAMOTRIGINE) [Suspect]
     Indication: EPILEPSY
     Dosage: DF [HISTORICAL TREATMENT]
  2. LOXOPROFEN [Concomitant]

REACTIONS (16)
  - Sudden unexplained death in epilepsy [None]
  - Loss of consciousness [None]
  - Snoring [None]
  - Pulmonary alveolar haemorrhage [None]
  - Pulmonary oedema [None]
  - Ecchymosis [None]
  - Gastric disorder [None]
  - Hepatic fibrosis [None]
  - Brain natriuretic peptide increased [None]
  - Biopsy heart abnormal [None]
  - Anaemia [None]
  - Eosinophilia [None]
  - Hypoxia [None]
  - Hypoventilation [None]
  - Cardiac failure [None]
  - Cardiac arrest [None]
